FAERS Safety Report 12460695 (Version 3)
Quarter: 2016Q3

REPORT INFORMATION
  Report Type: Spontaneous
  Country: US (occurrence: US)
  Receive Date: 20160613
  Receipt Date: 20160705
  Transmission Date: 20161109
  Serious: Yes (Hospitalization, Other)
  Sender: FDA-Public Use
  Company Number: US-PFIZER INC-2016293892

PATIENT
  Age: 58 Year
  Sex: Male

DRUGS (2)
  1. NAPROXEN. [Interacting]
     Active Substance: NAPROXEN
     Indication: BACK PAIN
     Dosage: UNK
  2. PHENYTOIN. [Suspect]
     Active Substance: PHENYTOIN
     Indication: SEIZURE
     Dosage: 200 MG, 2X/DAY

REACTIONS (7)
  - Vision blurred [Recovering/Resolving]
  - Drug interaction [Recovering/Resolving]
  - Toxicity to various agents [Recovering/Resolving]
  - Nystagmus [Recovering/Resolving]
  - Anticonvulsant drug level increased [Recovered/Resolved]
  - Dizziness [Recovering/Resolving]
  - Vertigo [Recovering/Resolving]
